FAERS Safety Report 24404838 (Version 2)
Quarter: 2024Q4

REPORT INFORMATION
  Report Type: Spontaneous
  Country: TW (occurrence: TW)
  Receive Date: 20241007
  Receipt Date: 20241016
  Transmission Date: 20250114
  Serious: Yes (Death)
  Sender: PFIZER
  Company Number: TW-PFIZER INC-PV202400127999

PATIENT
  Age: 44 Year
  Sex: Male

DRUGS (4)
  1. VORICONAZOLE [Suspect]
     Active Substance: VORICONAZOLE
     Indication: Fungaemia
     Dosage: 300 MG, Q12H
     Route: 041
  2. COLISTIN A SODIUM METHANESULFONATE [Suspect]
     Active Substance: COLISTIN A SODIUM METHANESULFONATE
     Indication: Acinetobacter test positive
     Dosage: 4.00 MU Q8H
     Route: 041
  3. CEFOPERAZONE [Suspect]
     Active Substance: CEFOPERAZONE
     Indication: Acinetobacter test positive
     Dosage: 2000 MG
  4. SULBACTAM [Suspect]
     Active Substance: SULBACTAM
     Indication: Acinetobacter test positive
     Dosage: 2000 MG, Q12H
     Route: 041

REACTIONS (1)
  - Drug ineffective [Fatal]
